FAERS Safety Report 22170780 (Version 1)
Quarter: 2023Q2

REPORT INFORMATION
  Report Type: Other
  Country: CN (occurrence: CN)
  Receive Date: 20230404
  Receipt Date: 20230404
  Transmission Date: 20230722
  Serious: Yes (Other)
  Sender: FDA-Public Use
  Company Number: CN-BoehringerIngelheim-2023-BI-228265

PATIENT
  Age: 73 Year
  Sex: Male

DRUGS (1)
  1. ALTEPLASE [Suspect]
     Active Substance: ALTEPLASE
     Indication: Cerebral artery embolism
     Route: 042

REACTIONS (2)
  - Haemorrhagic cerebral infarction [Unknown]
  - Cerebral artery occlusion [Unknown]
